FAERS Safety Report 6127257-3 (Version None)
Quarter: 2009Q1

REPORT INFORMATION
  Report Type: 
  Country: None (occurrence: None)
  Receive Date: 20090319
  Receipt Date: 20090305
  Transmission Date: 20090719
  Serious: Yes (Hospitalization)
  Sender: FDA-Public Use
  Company Number: 02100-JPN-07-0314

PATIENT
  Age: 80 Year
  Sex: Female

DRUGS (10)
  1. PLETAL [Suspect]
     Indication: CEREBRAL ARTERY STENOSIS
     Dosage: 100 MG, BID
     Route: 048
     Dates: start: 20070404, end: 20071030
  2. ASPIRIN (ENTERIC COATED) (ASPIRIN (ENTERIC COATED) [Concomitant]
  3. MAGNESIUM OXIDE (MAGNESISUM OXIDE) [Concomitant]
  4. METFORMIN HCL [Concomitant]
  5. ESCITALOPRAM OXALATE (ESCITALOPRAM OXALATE) [Concomitant]
  6. IRBESARTAN (IREBESARTAN) [Concomitant]
  7. CALCIUM POLYCARBOPHIL (CALCIUM POLYCARBOPHIL) [Concomitant]
  8. ANYTAL (MADE BY ANGOOK) (ANYTAL(MADE BY ANGOOK) [Concomitant]
  9. KETOPROFEN [Concomitant]
  10. AMLODIPINE MALEATE (AMLODIPINE MALEATE) [Concomitant]

REACTIONS (4)
  - ABNORMAL BEHAVIOUR [None]
  - HYPOPHAGIA [None]
  - MEMORY IMPAIRMENT [None]
  - POLLAKIURIA [None]
